FAERS Safety Report 18575986 (Version 1)
Quarter: 2020Q4

REPORT INFORMATION
  Report Type: Spontaneous
  Country: BE (occurrence: BE)
  Receive Date: 20201203
  Receipt Date: 20201203
  Transmission Date: 20210114
  Serious: Yes (Hospitalization, Other)
  Sender: FDA-Public Use
  Company Number: NVSC2020BE318477

PATIENT

DRUGS (1)
  1. METHOTREXATE. [Suspect]
     Active Substance: METHOTREXATE
     Indication: PRODUCT USED FOR UNKNOWN INDICATION
     Dosage: UNK
     Route: 065
     Dates: start: 202007

REACTIONS (11)
  - Osteoporosis [Unknown]
  - Hyperferritinaemia [Unknown]
  - Malaise [Unknown]
  - Rash [Unknown]
  - Acute kidney injury [Unknown]
  - Cushingoid [Unknown]
  - Hyperglycaemia [Unknown]
  - Pyrexia [Unknown]
  - Decreased appetite [Unknown]
  - C-reactive protein increased [Unknown]
  - Dehydration [Unknown]
